FAERS Safety Report 17451075 (Version 1)
Quarter: 2020Q1

REPORT INFORMATION
  Report Type: Spontaneous
  Country: CN (occurrence: CN)
  Receive Date: 20200224
  Receipt Date: 20200224
  Transmission Date: 20200409
  Serious: Yes (Other)
  Sender: FDA-Public Use
  Company Number: CN-BAXTER-2020BAX003898

PATIENT
  Age: 58 Year
  Sex: Female
  Weight: 55 kg

DRUGS (5)
  1. ENDOXAN [Suspect]
     Active Substance: CYCLOPHOSPHAMIDE
     Indication: BREAST CANCER FEMALE
     Dosage: DILUTED WITH 45 ML NS
     Route: 042
     Dates: start: 20191210, end: 20191210
  2. JINYOULI XIN RUIBAI [Concomitant]
     Indication: PROPHYLAXIS
     Route: 058
     Dates: start: 20191211, end: 20191211
  3. 0.9% SODIUM CHLORIDE INJECTION [Suspect]
     Active Substance: SODIUM CHLORIDE
     Indication: MEDICATION DILUTION
     Dosage: ENDOXAN + NORMAL SALINE
     Route: 042
     Dates: start: 20191210, end: 20191210
  4. 0.9% SODIUM CHLORIDE INJECTION [Suspect]
     Active Substance: SODIUM CHLORIDE
     Dosage: TAXOTI + NORMAL SALINE
     Route: 041
     Dates: start: 20191210, end: 20191210
  5. TAISUODI [DOCETAXEL] [Suspect]
     Active Substance: DOCETAXEL
     Indication: BREAST CANCER FEMALE
     Dosage: DILUTED WITH 250 ML NS
     Route: 041
     Dates: start: 20191210, end: 20191210

REACTIONS (1)
  - Agranulocytosis [Recovered/Resolved]

NARRATIVE: CASE EVENT DATE: 20191215
